FAERS Safety Report 13668885 (Version 1)
Quarter: 2017Q2

REPORT INFORMATION
  Report Type: Spontaneous
  Country: US (occurrence: US)
  Receive Date: 20170620
  Receipt Date: 20170620
  Transmission Date: 20170830
  Serious: No
  Sender: FDA-Public Use
  Company Number: US-BAYER-2017-114217

PATIENT
  Age: 78 Year
  Sex: Female
  Weight: 106 kg

DRUGS (1)
  1. MIRALAX [Suspect]
     Active Substance: POLYETHYLENE GLYCOL 3350
     Indication: GASTROINTESTINAL DISORDER
     Dosage: 1 DOSE
     Route: 048

REACTIONS (3)
  - Off label use [Unknown]
  - Tongue discomfort [Not Recovered/Not Resolved]
  - Incorrect drug administration duration [Unknown]
